FAERS Safety Report 20554810 (Version 2)
Quarter: 2022Q1

REPORT INFORMATION
  Report Type: Spontaneous
  Country: JP (occurrence: JP)
  Receive Date: 20220304
  Receipt Date: 20220310
  Transmission Date: 20220424
  Serious: Yes (Other)
  Sender: FDA-Public Use
  Company Number: JP-OTSUKA-2022_009653

PATIENT
  Age: 29 Year
  Sex: Male

DRUGS (11)
  1. ABILIFY [Suspect]
     Active Substance: ARIPIPRAZOLE
     Indication: Schizophrenia
     Dosage: 12 MG, QD, IN THE EVENING
     Route: 048
     Dates: start: 20220126, end: 20220201
  2. ABILIFY [Suspect]
     Active Substance: ARIPIPRAZOLE
     Dosage: 6 MG, QD, IN THE EVENING
     Route: 048
     Dates: start: 20220202, end: 20220203
  3. NITRAZEPAM [Concomitant]
     Active Substance: NITRAZEPAM
     Indication: Product used for unknown indication
     Dosage: 5 MG, QD, BEFORE BEDTIME
     Route: 048
     Dates: start: 20220126
  4. BELSOMRA [Concomitant]
     Active Substance: SUVOREXANT
     Indication: Product used for unknown indication
     Dosage: 20 MG, QD, BEFORE BEDTIME
     Route: 048
     Dates: start: 20220126
  5. POTASSIUM ASPARTATE [Concomitant]
     Active Substance: POTASSIUM ASPARTATE
     Indication: Product used for unknown indication
     Dosage: 300 MG, TID,  IN THE MORNING, NOON, AND EVENING
     Route: 048
     Dates: start: 20220128
  6. ZOLPIDEM TARTRATE [Concomitant]
     Active Substance: ZOLPIDEM TARTRATE
     Indication: Product used for unknown indication
     Dosage: 5 MG, AT THE TIME OF SLEEPLESSNESS, 10 DOSES
     Route: 048
     Dates: start: 20220126
  7. RISPERDAL [Concomitant]
     Active Substance: RISPERIDONE
     Indication: Product used for unknown indication
     Dosage: 1 ML, AT THE TIME OF UNREST, 10 DOSES
     Route: 048
     Dates: start: 20220126
  8. SODIUM PICOSULFATE [Concomitant]
     Active Substance: SODIUM PICOSULFATE
     Indication: Product used for unknown indication
     Dosage: 10 ML, QD, AT THE TIME OF CONSTIPATION
     Route: 048
     Dates: start: 20220126, end: 20220126
  9. LORAZEPAM [Concomitant]
     Active Substance: LORAZEPAM
     Indication: Product used for unknown indication
     Dosage: 1 DF, BID, IN THE MORNING AND EVENING
     Route: 065
     Dates: start: 20220202, end: 20220214
  10. LORAZEPAM [Concomitant]
     Active Substance: LORAZEPAM
     Dosage: 1 DF, QD, IN THE MORNING
     Route: 065
     Dates: start: 20220215, end: 20220222
  11. FOLIC ACID [Concomitant]
     Active Substance: FOLIC ACID
     Indication: Product used for unknown indication
     Dosage: 5 MG, QD,  IN THE EVENING
     Route: 065
     Dates: start: 20220203, end: 20220217

REACTIONS (1)
  - Hepatic function abnormal [Recovering/Resolving]

NARRATIVE: CASE EVENT DATE: 20220202
